FAERS Safety Report 8002969-5 (Version None)
Quarter: 2011Q4

REPORT INFORMATION
  Report Type: 
  Country: None (occurrence: None)
  Receive Date: 20111222
  Receipt Date: 20110608
  Transmission Date: 20120403
  Serious: No
  Sender: FDA-Public Use
  Company Number: US-GLAXOSMITHKLINE-A0930779A

PATIENT
  Age: 80 Year
  Sex: Male

DRUGS (3)
  1. BLOOD PRESSURE MEDICATION [Concomitant]
  2. AVODART [Suspect]
     Indication: PROSTATOMEGALY
     Dosage: 1TAB PER DAY
     Route: 048
     Dates: start: 20110101, end: 20110501
  3. ANTI-CHOLESTEROL MEDICATION [Concomitant]

REACTIONS (5)
  - BREAST TENDERNESS [None]
  - SKIN INDURATION [None]
  - NIPPLE PAIN [None]
  - RASH [None]
  - BREAST SWELLING [None]
